FAERS Safety Report 6062054-9 (Version None)
Quarter: 2009Q1

REPORT INFORMATION
  Report Type: 
  Country: None (occurrence: None)
  Receive Date: 20090202
  Receipt Date: 20090123
  Transmission Date: 20090719
  Serious: Yes (Life-Threatening)
  Sender: FDA-Public Use
  Company Number: JP-BAXTER-2008BH012952

PATIENT
  Age: 7 Year
  Sex: Female

DRUGS (4)
  1. ENDOXAN BAXTER [Suspect]
     Indication: NEUROBLASTOMA
     Route: 041
     Dates: start: 20020730, end: 20040401
  2. DACARBAZINE [Suspect]
     Indication: NEUROBLASTOMA
     Route: 041
     Dates: start: 20030501, end: 20060401
  3. THERARUBICIN [Suspect]
     Indication: NEUROBLASTOMA
     Route: 041
     Dates: start: 20020730, end: 20040401
  4. CARBOPLATIN [Suspect]
     Indication: NEUROBLASTOMA
     Route: 041
     Dates: start: 20030501, end: 20060401

REACTIONS (1)
  - BONE SARCOMA [None]
